FAERS Safety Report 7279808-3 (Version None)
Quarter: 2011Q1

REPORT INFORMATION
  Report Type: 
  Country: None (occurrence: None)
  Receive Date: 20110208
  Receipt Date: 20110202
  Transmission Date: 20110831
  Serious: Yes (Other)
  Sender: FDA-Public Use
  Company Number: US-AMGEN-USASP2011006368

PATIENT
  Age: 62 Year
  Sex: Male

DRUGS (2)
  1. NEUPOGEN [Suspect]
     Indication: CHEMOTHERAPY
     Dates: start: 20110122
  2. ANTINEOPLASTIC AGENTS [Concomitant]

REACTIONS (1)
  - NEUTROPHIL COUNT ABNORMAL [None]
